FAERS Safety Report 5718686-8 (Version None)
Quarter: 2008Q2

REPORT INFORMATION
  Report Type: 
  Country: None (occurrence: None)
  Receive Date: 20080425
  Receipt Date: 20080418
  Transmission Date: 20081010
  Serious: Yes (Death, Hospitalization, Other)
  Sender: FDA-Public Use
  Company Number: US-ABBOTT-08P-163-0444202-00

PATIENT
  Age: 57 Year
  Sex: Male
  Weight: 76.272 kg

DRUGS (1)
  1. HUMIRA [Suspect]
     Indication: RHEUMATOID ARTHRITIS
     Route: 058
     Dates: start: 20061207

REACTIONS (20)
  - ARTHRITIS BACTERIAL [None]
  - CONSTIPATION [None]
  - FAECALOMA [None]
  - HYPOAESTHESIA [None]
  - ILEUS [None]
  - INTERVERTEBRAL DISCITIS [None]
  - METAPNEUMOVIRUS INFECTION [None]
  - MUSCULAR WEAKNESS [None]
  - MYOCARDIAL INFARCTION [None]
  - OVERDOSE [None]
  - PAIN IN EXTREMITY [None]
  - PARAPLEGIA [None]
  - PULMONARY SEPSIS [None]
  - RENAL FAILURE [None]
  - RESPIRATORY DISTRESS [None]
  - RESPIRATORY FAILURE [None]
  - RHABDOMYOLYSIS [None]
  - SEPTIC SHOCK [None]
  - SOMNOLENCE [None]
  - STAPHYLOCOCCAL INFECTION [None]
